FAERS Safety Report 24416964 (Version 1)
Quarter: 2024Q4

REPORT INFORMATION
  Report Type: Spontaneous
  Country: FR (occurrence: FR)
  Receive Date: 20241009
  Receipt Date: 20241009
  Transmission Date: 20250115
  Serious: Yes (Other)
  Sender: NORDIC PHARMA
  Company Number: None

PATIENT
  Age: 72 Year
  Sex: Male
  Weight: 74 kg

DRUGS (1)
  1. METHOTREXATE [Suspect]
     Active Substance: METHOTREXATE
     Indication: Rheumatoid arthritis
     Route: 065

REACTIONS (1)
  - Radiation proctitis [Recovered/Resolved]

NARRATIVE: CASE EVENT DATE: 20230301
